FAERS Safety Report 17173429 (Version 1)
Quarter: 2019Q4

REPORT INFORMATION
  Report Type: Spontaneous
  Country: CN (occurrence: CN)
  Receive Date: 20191219
  Receipt Date: 20191219
  Transmission Date: 20200122
  Serious: Yes (Other)
  Sender: FDA-Public Use
  Company Number: CN-PFIZER INC-2019546392

PATIENT
  Age: 40 Year
  Sex: Female
  Weight: 57.5 kg

DRUGS (3)
  1. JIA LI XIN [Concomitant]
     Indication: ANTI-INFECTIVE THERAPY
     Dosage: 0.2 G, 1X/DAY
     Route: 041
     Dates: start: 20191123, end: 20191123
  2. LI KE WEI [GANCICLOVIR] [Concomitant]
     Indication: ANTI-INFECTIVE THERAPY
     Dosage: 300 MG, 2X/DAY
     Route: 041
     Dates: start: 20191123, end: 20191123
  3. TAZOCIN [Suspect]
     Active Substance: PIPERACILLIN SODIUM\TAZOBACTAM SODIUM
     Indication: ANTI-INFECTIVE THERAPY
     Dosage: 4.5 G, 1X/DAY
     Route: 041
     Dates: start: 20191123, end: 20191123

REACTIONS (11)
  - Face oedema [Recovering/Resolving]
  - Localised oedema [Recovering/Resolving]
  - Rash erythematous [Recovering/Resolving]
  - Cough [Recovering/Resolving]
  - Rash [Recovering/Resolving]
  - Blood pressure decreased [Recovering/Resolving]
  - Pyrexia [Recovering/Resolving]
  - Chills [Recovering/Resolving]
  - Dyspnoea [Recovering/Resolving]
  - Drug hypersensitivity [Recovering/Resolving]
  - Off label use [Unknown]

NARRATIVE: CASE EVENT DATE: 20191123
